FAERS Safety Report 25375289 (Version 1)
Quarter: 2025Q2

REPORT INFORMATION
  Report Type: Spontaneous
  Country: US (occurrence: US)
  Receive Date: 20250529
  Receipt Date: 20250529
  Transmission Date: 20250716
  Serious: No
  Sender: CARDINAL HEALTH
  Company Number: US-Cardinal Health 414-NPHS-AE-24-33

PATIENT
  Age: 46 Year
  Sex: Female
  Weight: 57.6 kg

DRUGS (1)
  1. SODIUM IODIDE I-123 [Suspect]
     Active Substance: SODIUM IODIDE I-123
     Indication: Scan thyroid gland
     Route: 048
     Dates: start: 20240619, end: 20240619

REACTIONS (3)
  - Abdominal pain upper [Unknown]
  - Vomiting [Unknown]
  - Nausea [Unknown]

NARRATIVE: CASE EVENT DATE: 20240620
